FAERS Safety Report 17351864 (Version 1)
Quarter: 2020Q1

REPORT INFORMATION
  Report Type: Spontaneous
  Country: TR (occurrence: TR)
  Receive Date: 20200130
  Receipt Date: 20200130
  Transmission Date: 20200409
  Serious: Yes (Other)
  Sender: FDA-Public Use
  Company Number: TR-PFIZER INC-2017SE67411

PATIENT
  Age: 22 Year
  Sex: Female

DRUGS (2)
  1. MEROPENEM. [Suspect]
     Active Substance: MEROPENEM
     Indication: SEPSIS
     Dosage: 0.5 G, THRICE DAILY
     Route: 042
  2. MEROPENEM. [Suspect]
     Active Substance: MEROPENEM
     Indication: AMNIOTIC CAVITY INFECTION

REACTIONS (2)
  - Stillbirth [Unknown]
  - Maternal exposure during pregnancy [Unknown]
